FAERS Safety Report 24452769 (Version 1)
Quarter: 2024Q4

REPORT INFORMATION
  Report Type: Spontaneous
  Country: ES (occurrence: ES)
  Receive Date: 20241017
  Receipt Date: 20241017
  Transmission Date: 20250115
  Serious: Yes (Life-Threatening, Hospitalization)
  Sender: TEVA
  Company Number: None

PATIENT
  Age: 55 Year
  Sex: Female
  Weight: 51.1 kg

DRUGS (5)
  1. TACROLIMUS [Suspect]
     Active Substance: TACROLIMUS
     Indication: Solid organ transplant
     Dosage: TACROLIMUS (2694A)
     Route: 048
     Dates: start: 20240706
  2. MYCOPHENOLATE MOFETIL [Suspect]
     Active Substance: MYCOPHENOLATE MOFETIL
     Indication: Idiopathic interstitial pneumonia
     Dosage: MICOFENOLATO DE MOFETILO (7330LM)
     Route: 048
     Dates: start: 2015
  3. RITUXIMAB [Suspect]
     Active Substance: RITUXIMAB
     Indication: Idiopathic interstitial pneumonia
     Dosage: RITUXIMAB (2814A)
     Route: 042
     Dates: start: 20221003, end: 202403
  4. BASILIXIMAB [Suspect]
     Active Substance: BASILIXIMAB
     Indication: Solid organ transplant
     Dosage: BASILIXIMAB (1076A)
     Route: 042
     Dates: start: 20240703, end: 20240706
  5. PREDNISONE [Suspect]
     Active Substance: PREDNISONE
     Indication: Idiopathic interstitial pneumonia
     Dosage: PREDNISONA (886A)
     Route: 048
     Dates: start: 2015

REACTIONS (1)
  - Pneumonia cytomegaloviral [Recovered/Resolved]

NARRATIVE: CASE EVENT DATE: 20240717
